FAERS Safety Report 14877250 (Version 1)
Quarter: 2018Q2

REPORT INFORMATION
  Report Type: Report from Study
  Country: US (occurrence: US)
  Receive Date: 20180510
  Receipt Date: 20180510
  Transmission Date: 20180711
  Serious: Yes (Other)
  Sender: FDA-Public Use
  Company Number: US-EISAI MEDICAL RESEARCH-EC-2016-021324

PATIENT
  Age: 53 Year
  Sex: Male
  Weight: 78 kg

DRUGS (6)
  1. LENVIMA [Suspect]
     Active Substance: LENVATINIB
     Indication: THYROID CANCER
     Route: 048
     Dates: start: 20160901, end: 20161202
  2. CALTRATE WITH VITAMIN D [Concomitant]
     Active Substance: CALCIUM CARBONATE\CHOLECALCIFEROL
  3. CITRACAL PLUS BONE DENSITY [Concomitant]
  4. LENVIMA [Suspect]
     Active Substance: LENVATINIB
     Route: 048
     Dates: start: 20161209, end: 20180501
  5. CALCITROL [Concomitant]
     Active Substance: CALCITRIOL
  6. LEVOXYL [Concomitant]
     Active Substance: LEVOTHYROXINE SODIUM

REACTIONS (21)
  - Glossodynia [Unknown]
  - Abdominal discomfort [Unknown]
  - Temperature intolerance [Unknown]
  - Blood thyroid stimulating hormone increased [Unknown]
  - Dysphonia [Not Recovered/Not Resolved]
  - Myocardial infarction [Unknown]
  - Blood pressure increased [Recovering/Resolving]
  - Fatigue [Unknown]
  - Palmar-plantar erythrodysaesthesia syndrome [Unknown]
  - Blood creatinine increased [Unknown]
  - Weight decreased [Unknown]
  - Gait disturbance [Unknown]
  - Myalgia [Unknown]
  - Decreased appetite [Unknown]
  - Blood urea increased [Unknown]
  - Back pain [Unknown]
  - Aphonia [Unknown]
  - Arthralgia [Unknown]
  - Diarrhoea [Unknown]
  - Stomatitis [Unknown]
  - Feeling cold [Unknown]

NARRATIVE: CASE EVENT DATE: 2016
